FAERS Safety Report 7903476-8 (Version None)
Quarter: 2011Q4

REPORT INFORMATION
  Report Type: 
  Country: None (occurrence: None)
  Receive Date: 20111107
  Receipt Date: 20111024
  Transmission Date: 20120403
  Serious: Yes (Disabling)
  Sender: FDA-Public Use
  Company Number: 2011MA015450

PATIENT
  Sex: Female

DRUGS (3)
  1. CATAPRES [Concomitant]
  2. LATEX PATCHES [Suspect]
  3. LORAZEPAM [Suspect]
     Dosage: PO
     Route: 048

REACTIONS (6)
  - DRUG INEFFECTIVE [None]
  - BLOOD PRESSURE INADEQUATELY CONTROLLED [None]
  - ABASIA [None]
  - LATEX ALLERGY [None]
  - DEVICE ISSUE [None]
  - HYPERSENSITIVITY [None]
